FAERS Safety Report 11010730 (Version 5)
Quarter: 2016Q1

REPORT INFORMATION
  Report Type: Report from Study
  Country: JP (occurrence: JP)
  Receive Date: 20150410
  Receipt Date: 20160119
  Transmission Date: 20160525
  Serious: Yes (Death, Other)
  Sender: FDA-Public Use
  Company Number: JP-AMGEN-JPNCT2015035025

PATIENT
  Age: 90 Year
  Sex: Male
  Weight: 61 kg

DRUGS (3)
  1. HYDREA [Concomitant]
     Active Substance: HYDROXYUREA
     Indication: LEUKAEMIA
     Dosage: UNK
     Route: 048
     Dates: start: 20150622, end: 20151029
  2. PREDNISOLONE. [Concomitant]
     Active Substance: PREDNISOLONE
     Indication: IMMUNE THROMBOCYTOPENIC PURPURA
     Dosage: 5 MG, UNK
     Route: 048
     Dates: start: 20140701, end: 20140804
  3. ROMIPLOSTIM [Suspect]
     Active Substance: ROMIPLOSTIM
     Indication: IMMUNE THROMBOCYTOPENIC PURPURA
     Dosage: 10 MUG, QWK
     Route: 058
     Dates: start: 20140715, end: 20150302

REACTIONS (3)
  - Acute myeloid leukaemia [Fatal]
  - Off label use [Unknown]
  - Blast cell count increased [Recovering/Resolving]

NARRATIVE: CASE EVENT DATE: 20150302
